FAERS Safety Report 13598732 (Version 1)
Quarter: 2017Q2

REPORT INFORMATION
  Report Type: Spontaneous
  Country: TW (occurrence: TW)
  Receive Date: 20170531
  Receipt Date: 20170531
  Transmission Date: 20170830
  Serious: Yes (Other)
  Sender: FDA-Public Use
  Company Number: TW-PFIZER INC-2017236334

PATIENT
  Sex: Female

DRUGS (2)
  1. VFEND [Suspect]
     Active Substance: VORICONAZOLE
     Indication: CANDIDA INFECTION
  2. ERAXIS [Suspect]
     Active Substance: ANIDULAFUNGIN
     Indication: CANDIDA INFECTION

REACTIONS (3)
  - Acidosis [Unknown]
  - Shock [Unknown]
  - Hypotension [Unknown]
